FAERS Safety Report 9240015 (Version 3)
Quarter: 2013Q4

REPORT INFORMATION
  Report Type: Spontaneous
  Country: CH (occurrence: CH)
  Receive Date: 20130418
  Receipt Date: 20131017
  Transmission Date: 20140711
  Serious: Yes (Hospitalization, Other)
  Sender: FDA-Public Use
  Company Number: CH-ASTRAZENECA-2011SE14394

PATIENT
  Age: 27049 Day
  Sex: Female

DRUGS (11)
  1. COTENOLOL NEO [Suspect]
     Route: 065
  2. PLACEBO [Suspect]
     Indication: BREAST CANCER
     Dosage: TWO TIMES DAILY
     Route: 048
     Dates: start: 20101124
  3. PACLITAXEL [Suspect]
     Indication: BREAST CANCER
     Route: 042
     Dates: start: 20101124, end: 20101124
  4. PACLITAXEL [Suspect]
     Indication: BREAST CANCER
     Route: 042
     Dates: start: 20101130, end: 20101130
  5. PACLITAXEL [Suspect]
     Indication: BREAST CANCER
     Route: 042
     Dates: start: 20101207, end: 20101207
  6. PACLITAXEL [Suspect]
     Indication: BREAST CANCER
     Route: 042
     Dates: start: 20101222, end: 20101222
  7. PACLITAXEL [Suspect]
     Indication: BREAST CANCER
     Route: 042
     Dates: start: 20101229, end: 20101229
  8. PACLITAXEL [Suspect]
     Indication: BREAST CANCER
     Route: 042
     Dates: start: 20110105, end: 20110105
  9. PACLITAXEL [Suspect]
     Indication: BREAST CANCER
     Route: 042
     Dates: start: 20110119, end: 20110119
  10. PACLITAXEL [Suspect]
     Indication: BREAST CANCER
     Route: 042
     Dates: start: 20110126, end: 20110126
  11. PACLITAXEL [Suspect]
     Indication: BREAST CANCER
     Route: 042
     Dates: start: 20110202, end: 20110202

REACTIONS (1)
  - Hyponatraemia [Recovered/Resolved]
